FAERS Safety Report 6187494-9 (Version None)
Quarter: 2009Q2

REPORT INFORMATION
  Report Type: 
  Country: None (occurrence: None)
  Receive Date: 20090512
  Receipt Date: 20090506
  Transmission Date: 20091009
  Serious: Yes (Other)
  Sender: FDA-Public Use
  Company Number: BR-ABBOTT-09P-020-0571217-00

PATIENT
  Age: 10 Year
  Sex: Male

DRUGS (5)
  1. VALPROATE SODIUM [Suspect]
     Indication: FRONTAL LOBE EPILEPSY
     Dosage: NOT REPORTED
  2. VALPROATE SODIUM [Interacting]
     Dosage: KID DRUG REGIMEN
  3. PROPOFOL [Interacting]
     Indication: ANAESTHESIA
     Dosage: NOT REPORTED
  4. FENTANYL [Interacting]
     Indication: ANAESTHESIA
     Dosage: NOT REPORTED
  5. LAMOTRIGINE [Concomitant]
     Indication: FRONTAL LOBE EPILEPSY
     Dosage: UNKNOWN

REACTIONS (2)
  - DRUG INTERACTION [None]
  - HYPERAMMONAEMIC ENCEPHALOPATHY [None]
